FAERS Safety Report 8138732-4 (Version None)
Quarter: 2012Q1

REPORT INFORMATION
  Report Type: 
  Country: None (occurrence: None)
  Receive Date: 20120215
  Receipt Date: 20120207
  Transmission Date: 20120608
  Serious: Yes (Death)
  Sender: FDA-Public Use
  Company Number: US-GLAXOSMITHKLINE-A0961479A

PATIENT
  Age: 67 Year
  Sex: Male

DRUGS (1)
  1. ARIXTRA [Suspect]
     Indication: DEEP VEIN THROMBOSIS
     Dosage: 7.5MG UNKNOWN
     Route: 065
     Dates: start: 20110209

REACTIONS (2)
  - PANCREATIC CARCINOMA STAGE IV [None]
  - ASTHENIA [None]
